FAERS Safety Report 5288287-7 (Version None)
Quarter: 2007Q1

REPORT INFORMATION
  Report Type: 
  Country: None (occurrence: None)
  Receive Date: 20070116
  Receipt Date: 20060223
  Transmission Date: 20070707
  Serious: Yes (Hospitalization)
  Sender: FDA-Public Use
  Company Number: FEI2006-0271

PATIENT
  Age: 20 Year
  Sex: Female
  Weight: 73.0291 kg

DRUGS (2)
  1. INTRAUTERINE COPPER CONTRACEPTIVE [Suspect]
     Indication: CONTRACEPTION
     Dosage: INTRA-UTERINE
     Route: 015
     Dates: start: 20050301, end: 20060314
  2. PRENATAL VITAMINS (PRENATAL VITAMINS/01549301) [Concomitant]

REACTIONS (7)
  - ABDOMINAL PAIN [None]
  - ABORTION SPONTANEOUS [None]
  - IUCD COMPLICATION [None]
  - IUD MIGRATION [None]
  - PELVIC PERITONEAL ADHESIONS [None]
  - UNINTENDED PREGNANCY [None]
  - UTERINE PERFORATION [None]
